FAERS Safety Report 5313121-6 (Version None)
Quarter: 2007Q1

REPORT INFORMATION
  Report Type: 
  Country: None (occurrence: None)
  Receive Date: 20070201
  Receipt Date: 20061108
  Transmission Date: 20070707
  Serious: No
  Sender: FDA-Public Use
  Company Number: VNL_0286_2006

PATIENT
  Age: 77 Year
  Sex: Female
  Weight: 66.2252 kg

DRUGS (9)
  1. APOKYN [Suspect]
     Indication: PARKINSON'S DISEASE
     Dosage: 0.2 ML TWICE SC
     Route: 057
     Dates: start: 20061031, end: 20061031
  2. APOKYN [Suspect]
     Indication: PARKINSON'S DISEASE
     Dosage: 0.1 ML PRN SC
     Route: 058
     Dates: start: 20061101, end: 20061103
  3. SINEMET [Concomitant]
  4. PERMAX [Concomitant]
  5. POTASSIUM ACETATE [Concomitant]
  6. METFORMIN HCL [Concomitant]
  7. DIOVAN /01319601/ [Concomitant]
  8. GLIPIZIDE [Concomitant]
  9. ASPIRIN [Concomitant]

REACTIONS (2)
  - DRUG INEFFECTIVE [None]
  - PHARMACEUTICAL PRODUCT COMPLAINT [None]
